FAERS Safety Report 6894958-9 (Version None)
Quarter: 2010Q3

REPORT INFORMATION
  Report Type: 
  Country: None (occurrence: None)
  Receive Date: 20100802
  Receipt Date: 20100729
  Transmission Date: 20110219
  Serious: Yes (Death, Other)
  Sender: FDA-Public Use
  Company Number: PH-ROCHE-712203

PATIENT
  Sex: Female

DRUGS (18)
  1. BLINDED BEVACIZUMAB [Suspect]
     Indication: DIFFUSE LARGE B-CELL LYMPHOMA
     Dosage: FORM: LIQUID/IV SOLUTION.
     Route: 042
     Dates: start: 20091026, end: 20100415
  2. RITUXIMAB [Suspect]
     Indication: DIFFUSE LARGE B-CELL LYMPHOMA
     Route: 042
     Dates: start: 20091026, end: 20100415
  3. DOXORUBICIN HCL [Suspect]
     Indication: DIFFUSE LARGE B-CELL LYMPHOMA
     Route: 042
     Dates: start: 20091026, end: 20100415
  4. CYCLOPHOSPHAMIDE [Suspect]
     Indication: DIFFUSE LARGE B-CELL LYMPHOMA
     Route: 042
     Dates: start: 20091026, end: 20100415
  5. VINCRISTINE [Suspect]
     Indication: DIFFUSE LARGE B-CELL LYMPHOMA
     Route: 042
     Dates: start: 20091026, end: 20100415
  6. PREDNISONE [Suspect]
     Indication: DIFFUSE LARGE B-CELL LYMPHOMA
     Dosage: LAST DOSE PRIOR TO SAE: 15 APRIL 2010. FREQUENCY: BID EVERY 5 DAYS.
     Route: 048
     Dates: start: 20091026
  7. DOLO-NEUROBION [Concomitant]
     Indication: NEUROPATHY PERIPHERAL
     Dates: start: 20100205, end: 20100601
  8. VITAMIN AND MINERAL PRENATAL SUPPLEMENT W/ FOLIC ACID CAP [Concomitant]
     Dates: start: 20091024, end: 20100101
  9. DOLCET [Concomitant]
     Indication: PAIN
     Dates: start: 20100513, end: 20100526
  10. DOLCET [Concomitant]
     Dates: start: 20100603, end: 20100605
  11. CALTRATE PLUS [Concomitant]
     Dates: start: 20100602, end: 20100604
  12. METOCLOPRAMIDE [Concomitant]
     Indication: NAUSEA
     Dosage: OTHER INDICATION: VOMITING
     Route: 042
     Dates: start: 20100527, end: 20100527
  13. METHYCOBAL [Concomitant]
     Indication: NEUROPATHY PERIPHERAL
     Dosage: NGT
     Dates: start: 20100602, end: 20100604
  14. FOLIC ACID [Concomitant]
     Dates: start: 20100602, end: 20100604
  15. LACTULOSE [Concomitant]
     Indication: CONSTIPATION
     Dosage: 30 CC HOLD FOR BOWEL MOVEMENT MORE OR EQUAL TO 2 PER DAY
     Dates: start: 20100604, end: 20100604
  16. NEXIUM [Concomitant]
     Indication: GASTRODUODENAL ULCER
     Dates: start: 20100604, end: 20100605
  17. DULCOLAX [Concomitant]
     Indication: CONSTIPATION
     Dosage: AT NIGHT
     Dates: start: 20100603, end: 20100603
  18. MULTI-VITAMIN [Concomitant]
     Dates: start: 20100415

REACTIONS (2)
  - DEATH [None]
  - EJECTION FRACTION DECREASED [None]
